FAERS Safety Report 8841264 (Version 2)
Quarter: 2012Q4

REPORT INFORMATION
  Report Type: 
  Country: FR (occurrence: IT)
  Receive Date: 20121015
  Receipt Date: 20121116
  Transmission Date: 20130627
  Serious: Yes (Life-Threatening, Hospitalization)
  Sender: FDA-Public Use
  Company Number: IT-009507513-1210USA005667

PATIENT
  Age: 37 Year
  Sex: Female

DRUGS (6)
  1. PROGESTERONE [Suspect]
     Indication: INFERTILITY
     Dosage: first cycle
     Dates: start: 2006
  2. PROGESTERONE [Suspect]
     Dosage: second cycle
     Dates: start: 2009
  3. PROGESTERONE [Suspect]
     Dosage: third cycle
     Dates: start: 2010
  4. GONADOTROPIN, CHORIONIC [Suspect]
     Indication: INFERTILITY
     Dosage: first cycle
     Dates: start: 2006
  5. GONADOTROPIN, CHORIONIC [Suspect]
     Dosage: second cycle
     Dates: start: 2009
  6. GONADOTROPIN, CHORIONIC [Suspect]
     Dosage: third cycle
     Dates: start: 2010

REACTIONS (3)
  - Meningioma [Recovered/Resolved with Sequelae]
  - Paresis [Recovered/Resolved with Sequelae]
  - Convulsion [Recovered/Resolved with Sequelae]
